FAERS Safety Report 9434842 (Version 1)
Quarter: 2013Q3

REPORT INFORMATION
  Report Type: Spontaneous
  Country: ES (occurrence: ES)
  Receive Date: 20130801
  Receipt Date: 20130801
  Transmission Date: 20140515
  Serious: No
  Sender: FDA-Public Use
  Company Number: ES-JNJFOC-20130714787

PATIENT
  Age: 72 Year
  Sex: Female

DRUGS (1)
  1. DUROGESIC [Suspect]
     Indication: PAIN
     Route: 062
     Dates: start: 201303

REACTIONS (2)
  - Inappropriate schedule of drug administration [Recovered/Resolved]
  - Pain [Recovered/Resolved]
